FAERS Safety Report 16874893 (Version 2)
Quarter: 2021Q1

REPORT INFORMATION
  Report Type: Spontaneous
  Country: US (occurrence: US)
  Receive Date: 20191001
  Receipt Date: 20210326
  Transmission Date: 20210419
  Serious: No
  Sender: FDA-Public Use
  Company Number: US-JNJFOC-20190938100

PATIENT
  Age: 39 Year
  Sex: Male
  Weight: 115.77 kg

DRUGS (2)
  1. SIMPONI [Suspect]
     Active Substance: GOLIMUMAB
     Indication: ANKYLOSING SPONDYLITIS
     Route: 058
     Dates: start: 2014
  2. SIMPONI [Suspect]
     Active Substance: GOLIMUMAB

REACTIONS (3)
  - Pain [Not Recovered/Not Resolved]
  - Product dose omission issue [Unknown]
  - Syringe issue [Unknown]

NARRATIVE: CASE EVENT DATE: 20190927
